FAERS Safety Report 13347171 (Version 1)
Quarter: 2017Q1

REPORT INFORMATION
  Report Type: Spontaneous
  Country: US (occurrence: US)
  Receive Date: 20170317
  Receipt Date: 20170317
  Transmission Date: 20170428
  Serious: No
  Sender: FDA-Public Use
  Company Number: US-PERRIGO-16US018415

PATIENT
  Age: 36 Year
  Sex: Female

DRUGS (1)
  1. CLINDAMYCIN AND BENZOYL PEROXIDE [Suspect]
     Active Substance: BENZOYL PEROXIDE\CLINDAMYCIN PHOSPHATE
     Indication: ACNE
     Dosage: ONE PEA SIZED APPLICATION, QD AT BEDTIME TO AFFECTED AREAS ON FACE
     Route: 061
     Dates: start: 201502, end: 201506

REACTIONS (3)
  - Application site exfoliation [Not Recovered/Not Resolved]
  - Inappropriate schedule of drug administration [Recovered/Resolved]
  - Application site discolouration [Not Recovered/Not Resolved]

NARRATIVE: CASE EVENT DATE: 201502
